FAERS Safety Report 17644243 (Version 1)
Quarter: 2020Q2

REPORT INFORMATION
  Report Type: Spontaneous
  Country: US (occurrence: US)
  Receive Date: 20200408
  Receipt Date: 20200408
  Transmission Date: 20200713
  Serious: No
  Sender: FDA-Public Use
  Company Number: US-PFIZER INC-2020144154

PATIENT
  Age: 62 Year
  Sex: Male
  Weight: 160 kg

DRUGS (2)
  1. KORLYM [Concomitant]
     Active Substance: MIFEPRISTONE
  2. FUROSEMIDE. [Suspect]
     Active Substance: FUROSEMIDE
     Indication: SWELLING
     Dosage: 40 MG, DAILY

REACTIONS (1)
  - Drug ineffective [Unknown]
